FAERS Safety Report 5414367-9 (Version None)
Quarter: 2007Q3

REPORT INFORMATION
  Report Type: 
  Country: None (occurrence: None)
  Receive Date: 20070814
  Receipt Date: 20070806
  Transmission Date: 20080115
  Serious: Yes (Other)
  Sender: FDA-Public Use
  Company Number: GB-PFIZER INC-2007065669

PATIENT
  Age: 31 Year
  Sex: Female

DRUGS (3)
  1. METHYLPREDNISOLONE 16MG TAB [Suspect]
     Indication: T-CELL LYMPHOMA REFRACTORY
     Dosage: TEXT:1G CYCLIC
  2. CISPLATIN [Suspect]
     Indication: T-CELL LYMPHOMA REFRACTORY
     Dosage: TEXT:100MG/M^2 CYCLIC
  3. GEMCITABINE HCL [Suspect]
     Indication: T-CELL LYMPHOMA REFRACTORY
     Dosage: TEXT:1000MG/M^2 CYCLIC

REACTIONS (1)
  - NEUTROPENIA [None]
